FAERS Safety Report 5421753-X (Version None)
Quarter: 2007Q3

REPORT INFORMATION
  Report Type: 
  Country: None (occurrence: None)
  Receive Date: 20070720
  Receipt Date: 20060713
  Transmission Date: 20080115
  Serious: Yes (Other)
  Sender: FDA-Public Use
  Company Number: PHEH2006US09041

PATIENT
  Age: 4 Year
  Sex: Female

DRUGS (1)
  1. TRILEPTAL [Suspect]
     Indication: COMPLEX PARTIAL SEIZURES
     Dosage: 60 MG, BID
     Dates: start: 20060711

REACTIONS (3)
  - COMPLEX PARTIAL SEIZURES [None]
  - FATIGUE [None]
  - SOMNOLENCE [None]
